FAERS Safety Report 5332444-8 (Version None)
Quarter: 2007Q2

REPORT INFORMATION
  Report Type: 
  Country: None (occurrence: None)
  Receive Date: 20070523
  Receipt Date: 20070522
  Transmission Date: 20071010
  Serious: Yes (Other)
  Sender: FDA-Public Use
  Company Number: US-BRISTOL-MYERS SQUIBB COMPANY-13788740

PATIENT
  Age: 54 Year
  Sex: Female

DRUGS (3)
  1. BLINDED: BMS562086 [Suspect]
     Indication: DEPRESSION
     Route: 048
     Dates: start: 20070501
  2. BLINDED: ESCITALOPRAM [Suspect]
     Indication: DEPRESSION
     Route: 048
     Dates: start: 20070501
  3. BLINDED: PLACEBO [Suspect]
     Indication: DEPRESSION
     Dates: start: 20070501

REACTIONS (1)
  - ACCIDENTAL OVERDOSE [None]
